FAERS Safety Report 6152226-7 (Version None)
Quarter: 2009Q2

REPORT INFORMATION
  Report Type: 
  Country: None (occurrence: None)
  Receive Date: 20090410
  Receipt Date: 20081126
  Transmission Date: 20091009
  Serious: Yes (Other)
  Sender: FDA-Public Use
  Company Number: US-ASTRAZENECA-2008AP09523

PATIENT
  Age: 50 Year
  Sex: Male

DRUGS (4)
  1. ZESTORETIC [Suspect]
     Dosage: 20/25 MG
     Route: 048
  2. ZESTRIL [Suspect]
     Route: 048
  3. NORVASC [Concomitant]
  4. CLONIDINE [Concomitant]

REACTIONS (1)
  - ARTHRALGIA [None]
